FAERS Safety Report 23207160 (Version 2)
Quarter: 2023Q4

REPORT INFORMATION
  Report Type: Spontaneous
  Country: US (occurrence: US)
  Receive Date: 20231120
  Receipt Date: 20231208
  Transmission Date: 20240109
  Serious: Yes (Hospitalization, Other)
  Sender: FDA-Public Use
  Company Number: US-JAZZ PHARMACEUTICALS-2023-US-023304

PATIENT
  Age: 35 Year
  Sex: Male

DRUGS (2)
  1. XYREM [Suspect]
     Active Substance: SODIUM OXYBATE
     Indication: Product used for unknown indication
     Dosage: UNK
  2. ALCOHOL [Suspect]
     Active Substance: ALCOHOL
     Indication: Product used for unknown indication

REACTIONS (12)
  - Coma [Recovered/Resolved]
  - Pneumonitis [Recovered/Resolved]
  - Drug abuse [Recovered/Resolved]
  - Respiratory depression [Recovered/Resolved]
  - Tachycardia [Recovered/Resolved]
  - Acidosis [Recovered/Resolved]
  - Anion gap increased [Recovered/Resolved]
  - Confusional state [Recovered/Resolved]
  - Somnolence [Recovered/Resolved]
  - Lethargy [Recovered/Resolved]
  - X-ray abnormal [Recovered/Resolved]
  - Hypertension [Recovered/Resolved]
